FAERS Safety Report 4852378-2 (Version None)
Quarter: 2005Q4

REPORT INFORMATION
  Report Type: 
  Country: None (occurrence: None)
  Receive Date: 20051129
  Receipt Date: 20050804
  Transmission Date: 20060501
  Serious: No
  Sender: FDA-Public Use
  Company Number: WAES 0508USA01206

PATIENT
  Age: 82 Year
  Sex: Female

DRUGS (5)
  1. ZETIA [Suspect]
     Indication: BLOOD CHOLESTEROL INCREASED
     Dosage: 10 MG/DAILY/PO
     Route: 048
     Dates: start: 20030408, end: 20050616
  2. ACTONEL [Concomitant]
  3. ALTACE [Concomitant]
  4. LOPRESSOR [Concomitant]
  5. SYNTHROID [Concomitant]

REACTIONS (3)
  - DRY SKIN [None]
  - MUSCULAR WEAKNESS [None]
  - MYALGIA [None]
